FAERS Safety Report 25058192 (Version 1)
Quarter: 2025Q1

REPORT INFORMATION
  Report Type: Report from Study
  Country: US (occurrence: US)
  Receive Date: 20250310
  Receipt Date: 20250310
  Transmission Date: 20250408
  Serious: Yes (Other)
  Sender: SUNOVION
  Company Number: US-SMPA-2025SPA002747

PATIENT

DRUGS (2)
  1. ORGOVYX [Suspect]
     Active Substance: RELUGOLIX
     Indication: Prostate cancer
     Route: 048
  2. ORGOVYX [Suspect]
     Active Substance: RELUGOLIX
     Dosage: 120 MG, QD
     Route: 048
     Dates: start: 20250211

REACTIONS (6)
  - Prostatectomy [Unknown]
  - Urinary incontinence [Unknown]
  - Gastrooesophageal reflux disease [Not Recovered/Not Resolved]
  - Sleep disorder [Unknown]
  - Dyspepsia [Not Recovered/Not Resolved]
  - Hot flush [Unknown]
